FAERS Safety Report 13705990 (Version 2)
Quarter: 2017Q3

REPORT INFORMATION
  Report Type: Spontaneous
  Country: AU (occurrence: AU)
  Receive Date: 20170630
  Receipt Date: 20170818
  Transmission Date: 20171127
  Serious: Yes (Other)
  Sender: FDA-Public Use
  Company Number: PHHY2016AU103255

PATIENT
  Sex: Male

DRUGS (2)
  1. LATANOPROST SANDOZ [Suspect]
     Active Substance: LATANOPROST
     Dosage: 50 UG, QD
     Route: 047
     Dates: start: 201606
  2. LATANOPROST SANDOZ [Suspect]
     Active Substance: LATANOPROST
     Indication: GLAUCOMA
     Route: 065
     Dates: start: 2013

REACTIONS (1)
  - Eye infection [Recovered/Resolved]
